FAERS Safety Report 9918479 (Version 2)
Quarter: 2014Q1

REPORT INFORMATION
  Report Type: Spontaneous
  Country: US (occurrence: US)
  Receive Date: 20140224
  Receipt Date: 20140306
  Transmission Date: 20141002
  Serious: No
  Sender: FDA-Public Use
  Company Number: US-BIOGENIDEC-2014BI014136

PATIENT
  Age: 64 Year
  Sex: Female

DRUGS (20)
  1. TECFIDERA [Suspect]
     Indication: MULTIPLE SCLEROSIS
     Route: 048
     Dates: start: 201310, end: 20140117
  2. TECFIDERA [Suspect]
     Indication: MULTIPLE SCLEROSIS
     Route: 048
     Dates: start: 201312, end: 201312
  3. TECFIDERA [Suspect]
     Indication: MULTIPLE SCLEROSIS
     Route: 048
     Dates: start: 20140211
  4. SULFAMETHOXAZOLE-TRIAM [Concomitant]
  5. BACLOFEN [Concomitant]
  6. ENABLEX [Concomitant]
  7. CITALOPRAM [Concomitant]
  8. BUPROPION [Concomitant]
  9. ALPRAZOLAM [Concomitant]
  10. AMITRIPTYLINE [Concomitant]
  11. DETROL [Concomitant]
  12. TIZANIDINE [Concomitant]
  13. PANTOPRAZOLE [Concomitant]
  14. DESMOPRESSIN [Concomitant]
  15. IRON [Concomitant]
  16. VIT B12 [Concomitant]
  17. VIT D [Concomitant]
  18. IBANDRONATE SODIUM [Concomitant]
  19. ALEVE [Concomitant]
  20. CELEXA [Concomitant]

REACTIONS (2)
  - Intentional underdose [Unknown]
  - Diarrhoea [Recovered/Resolved]
